FAERS Safety Report 15084822 (Version 1)
Quarter: 2018Q2

REPORT INFORMATION
  Report Type: Spontaneous
  Country: FR (occurrence: FR)
  Receive Date: 20180628
  Receipt Date: 20180628
  Transmission Date: 20180711
  Serious: Yes (Other)
  Sender: FDA-Public Use
  Company Number: FR-MYLANLABS-2018M1046697

PATIENT
  Age: 72 Year
  Sex: Female

DRUGS (10)
  1. ESOMEPRAZOLE [Concomitant]
     Active Substance: ESOMEPRAZOLE
     Indication: PRODUCT USED FOR UNKNOWN INDICATION
     Dosage: UNK
  2. CARBIMAZOLE [Concomitant]
     Active Substance: CARBIMAZOLE
     Indication: PRODUCT USED FOR UNKNOWN INDICATION
     Dosage: UNK
  3. TRAMADOL. [Suspect]
     Active Substance: TRAMADOL
     Indication: PRODUCT USED FOR UNKNOWN INDICATION
     Dosage: UNK
     Route: 048
  4. HYDROCHLOROTHIAZIDE. [Concomitant]
     Active Substance: HYDROCHLOROTHIAZIDE
     Indication: PRODUCT USED FOR UNKNOWN INDICATION
     Dosage: UNK
  5. CHLORURE DE TROSPIUM [Concomitant]
     Indication: PRODUCT USED FOR UNKNOWN INDICATION
     Dosage: UNK
  6. LISINOPRIL DIHYDRATE [Concomitant]
     Active Substance: LISINOPRIL
     Indication: PRODUCT USED FOR UNKNOWN INDICATION
     Dosage: UNK
  7. PARACETAMOL [Suspect]
     Active Substance: ACETAMINOPHEN
     Indication: PRODUCT USED FOR UNKNOWN INDICATION
     Dosage: UNK
     Route: 048
  8. OKIMUS [Concomitant]
     Active Substance: HAWTHORN LEAF WITH FLOWER\QUININE
     Indication: PRODUCT USED FOR UNKNOWN INDICATION
     Dosage: UNK
  9. METEOSPASMYL (ALVERINE CITRATE\DIMETHICONE) [Concomitant]
     Active Substance: ALVERINE CITRATE\DIMETHICONE
     Indication: PRODUCT USED FOR UNKNOWN INDICATION
     Dosage: UNK
  10. ZOPICLONE [Suspect]
     Active Substance: ZOPICLONE
     Indication: INSOMNIA
     Dosage: UNK
     Route: 048

REACTIONS (1)
  - Somnambulism [Recovered/Resolved]

NARRATIVE: CASE EVENT DATE: 20171224
